FAERS Safety Report 8799190 (Version 1)
Quarter: 2012Q4

REPORT INFORMATION
  Report Type: 
  Country: US (occurrence: US)
  Receive Date: 20120920
  Receipt Date: 20120920
  Transmission Date: 20130627
  Serious: No
  Sender: FDA-Public Use
  Company Number: US-ASTRAZENECA-2012SE22900

PATIENT
  Age: 59 Year
  Sex: Female
  Weight: 98.9 kg

DRUGS (6)
  1. LISINOPRIL [Suspect]
     Route: 048
  2. OMEPRAZOLE [Concomitant]
     Route: 048
  3. MUPIROCIN [Concomitant]
  4. PAROXETINE [Concomitant]
  5. QUETIAPINE FUMARATE [Concomitant]
     Route: 048
  6. ABILIFY [Concomitant]

REACTIONS (2)
  - Hypertension [Unknown]
  - Intentional drug misuse [Unknown]
